FAERS Safety Report 9434921 (Version 1)
Quarter: 2013Q3

REPORT INFORMATION
  Report Type: Spontaneous
  Country: US (occurrence: US)
  Receive Date: 20130801
  Receipt Date: 20130801
  Transmission Date: 20140515
  Serious: Yes (Hospitalization)
  Sender: FDA-Public Use
  Company Number: US-US-EMD SERONO, INC.-7227247

PATIENT
  Age: 61 Year
  Sex: Female
  Weight: 123 kg

DRUGS (32)
  1. METFORMIN [Suspect]
     Indication: TYPE 2 DIABETES MELLITUS
     Route: 048
     Dates: start: 201102, end: 20130321
  2. NAPROXEN [Suspect]
     Indication: OSTEOARTHRITIS
     Dates: start: 20110621, end: 20130321
  3. NAPROXEN [Suspect]
     Indication: RHEUMATOID ARTHRITIS
  4. CELECOXIB [Suspect]
     Indication: OSTEOARTHRITIS
     Dates: start: 20110621, end: 20130321
  5. CELECOXIB [Suspect]
     Indication: RHEUMATOID ARTHRITIS
  6. IBUPROFEN [Suspect]
     Indication: OSTEOARTHRITIS
     Dates: start: 20110621, end: 20130321
  7. IBUPROFEN [Suspect]
     Indication: RHEUMATOID ARTHRITIS
  8. PLACEBO [Suspect]
     Indication: OSTEOARTHRITIS
     Dates: start: 20110621, end: 20130321
  9. PLACEBO [Suspect]
     Indication: RHEUMATOID ARTHRITIS
  10. TOPIRAMATE [Suspect]
     Indication: DIABETIC NEUROPATHY
     Route: 048
     Dates: start: 2000, end: 20130321
  11. CIPRO /00697201/ [Suspect]
     Indication: DYSURIA
     Route: 048
     Dates: start: 20130313, end: 20130319
  12. MACROBID /00024401/ [Suspect]
     Indication: URINARY TRACT INFECTION
     Route: 048
     Dates: start: 20130201, end: 20130208
  13. MACROBID /00024401/ [Suspect]
     Route: 048
     Dates: start: 20130320, end: 20130327
  14. NEXIUM                             /01479302/ [Concomitant]
     Indication: GASTRIC ULCER
     Route: 048
  15. CALCITROL                          /00508501/ [Concomitant]
     Indication: VITAMIN D DEFICIENCY
     Route: 048
     Dates: start: 2009
  16. SPIRIVA [Concomitant]
     Indication: CHRONIC OBSTRUCTIVE PULMONARY DISEASE
     Dosage: 1 PUFF; INHALER
     Dates: start: 2005
  17. ADVAIR [Concomitant]
     Indication: ASTHMA
     Dosage: INHALER 1 PUFF TWICE DAILY
     Dates: start: 2005
  18. FLUTICASONE [Concomitant]
     Indication: SEASONAL ALLERGY
     Route: 045
     Dates: start: 2009
  19. AMITRIPTYLINE [Concomitant]
     Indication: ANXIETY
     Route: 048
     Dates: start: 2010
  20. SINGULAIR                          /01362601/ [Concomitant]
     Indication: ASTHMA
     Route: 048
     Dates: start: 1991
  21. OXYBUTYNIN [Concomitant]
     Indication: URINARY INCONTINENCE
     Route: 048
     Dates: start: 2005
  22. TYLENOL EXTRA STRENGTH [Concomitant]
     Indication: ARTHRALGIA
     Route: 048
     Dates: start: 20110809
  23. FUROSEMIDE [Concomitant]
     Indication: JOINT SWELLING
     Route: 048
     Dates: start: 2000
  24. VITAMIN B12                        /00056201/ [Concomitant]
     Indication: SUPPLEMENTATION THERAPY
     Route: 048
     Dates: start: 2004
  25. CALCIUM [Concomitant]
     Indication: SUPPLEMENTATION THERAPY
     Route: 048
     Dates: start: 2004
  26. IRON [Concomitant]
     Indication: SUPPLEMENTATION THERAPY
     Route: 048
     Dates: start: 2004
  27. CRANBERRY                          /01512301/ [Concomitant]
     Indication: URINARY TRACT INFECTION
     Dates: start: 2004
  28. VOLTAREN                           /00372301/ [Concomitant]
     Indication: ARTHRITIS
     Dosage: GEL
     Route: 061
     Dates: start: 20111008
  29. VENTOLIN HFA [Concomitant]
     Indication: CHRONIC OBSTRUCTIVE PULMONARY DISEASE
     Route: 048
     Dates: start: 2009
  30. LEVOTHYROXINE [Concomitant]
     Indication: HYPOTHYROIDISM
     Dates: start: 20121127
  31. MULTIVITAMINS [Concomitant]
     Indication: SUPPLEMENTATION THERAPY
     Route: 048
     Dates: start: 2004
  32. FISH OIL [Concomitant]
     Indication: SUPPLEMENTATION THERAPY
     Route: 048
     Dates: start: 201104

REACTIONS (1)
  - Renal failure acute [Recovering/Resolving]
